FAERS Safety Report 20016238 (Version 1)
Quarter: 2021Q4

REPORT INFORMATION
  Report Type: Spontaneous
  Country: US (occurrence: None)
  Receive Date: 20211103
  Receipt Date: 20211103
  Transmission Date: 20220303
  Serious: Yes (Hospitalization)
  Sender: FDA-Public Use
  Company Number: None

PATIENT
  Age: 68 Year
  Sex: Female

DRUGS (1)
  1. INLYTA [Suspect]
     Active Substance: AXITINIB
     Indication: Carcinoid tumour
     Dosage: FREQUENCY : TWICE A DAY;?
     Route: 048
     Dates: start: 20200104

REACTIONS (2)
  - Biopsy [None]
  - Therapy interrupted [None]

NARRATIVE: CASE EVENT DATE: 20211015
